FAERS Safety Report 10329363 (Version 2)
Quarter: 2014Q3

REPORT INFORMATION
  Report Type: Report from Study
  Country: AU (occurrence: AU)
  Receive Date: 20140721
  Receipt Date: 20140918
  Transmission Date: 20150326
  Serious: Yes (Other)
  Sender: FDA-Public Use
  Company Number: PHHY2014AU087374

PATIENT
  Age: 37 Year
  Sex: Male
  Weight: 71.4 kg

DRUGS (5)
  1. TRAMAL [Suspect]
     Active Substance: TRAMADOL
     Dosage: 2 DF, UNK
  2. SERTRALINE [Concomitant]
     Active Substance: SERTRALINE HYDROCHLORIDE
     Indication: ANXIETY
     Dosage: 150 MG, UNK
     Route: 048
  3. CLOZARIL [Suspect]
     Active Substance: CLOZAPINE
     Dosage: 250 MG/DAY
  4. CLOZARIL [Suspect]
     Active Substance: CLOZAPINE
     Indication: SCHIZOPHRENIA
     Dosage: 300 MG/DAY
     Route: 048
     Dates: start: 2008
  5. CODEINE [Suspect]
     Active Substance: CODEINE
     Dosage: UKN

REACTIONS (3)
  - Drug abuse [Unknown]
  - Psychogenic seizure [Unknown]
  - Antipsychotic drug level increased [Recovered/Resolved]

NARRATIVE: CASE EVENT DATE: 20140628
